FAERS Safety Report 23824475 (Version 2)
Quarter: 2024Q2

REPORT INFORMATION
  Report Type: Report from Study
  Country: CA (occurrence: CA)
  Receive Date: 20240507
  Receipt Date: 20240610
  Transmission Date: 20240716
  Serious: Yes (Hospitalization)
  Sender: FDA-Public Use
  Company Number: CA-Vifor (International) Inc.-VIT-2024-02351

PATIENT
  Age: 74 Year
  Sex: Female

DRUGS (3)
  1. AVACOPAN [Suspect]
     Active Substance: AVACOPAN
     Indication: Anti-neutrophil cytoplasmic antibody positive vasculitis
     Dosage: 30 MILLIGRAM, QD
     Route: 048
     Dates: start: 20240226, end: 20240311
  2. AVACOPAN [Suspect]
     Active Substance: AVACOPAN
     Dosage: 30 MILLIGRAM, QD
     Route: 048
     Dates: start: 20240316, end: 20240330
  3. AVACOPAN [Suspect]
     Active Substance: AVACOPAN
     Dosage: 30 MILLIGRAM, QD (3 CAPS OF TAVNEOS AT BREAKFAST AND NO IN AFTERNOON)
     Route: 048
     Dates: start: 2024

REACTIONS (8)
  - Anti-neutrophil cytoplasmic antibody positive vasculitis [Not Recovered/Not Resolved]
  - Renal injury [Not Recovered/Not Resolved]
  - Product dose omission issue [Unknown]
  - Hospitalisation [Not Recovered/Not Resolved]
  - Fungal infection [Not Recovered/Not Resolved]
  - Pneumonia [Not Recovered/Not Resolved]
  - Liver injury [Not Recovered/Not Resolved]
  - Underdose [Unknown]

NARRATIVE: CASE EVENT DATE: 20240101
